FAERS Safety Report 7229715-7 (Version None)
Quarter: 2011Q1

REPORT INFORMATION
  Report Type: 
  Country: None (occurrence: None)
  Receive Date: 20110117
  Receipt Date: 20110113
  Transmission Date: 20110831
  Serious: Yes (Hospitalization)
  Sender: FDA-Public Use
  Company Number: CH-ABBOTT-11P-151-0697271-00

PATIENT
  Age: 88 Year
  Sex: Female
  Weight: 61 kg

DRUGS (14)
  1. TOLVON [Suspect]
     Route: 048
     Dates: start: 20101025, end: 20101105
  2. REMINYL [Concomitant]
     Indication: PRODUCT USED FOR UNKNOWN INDICATION
     Dates: start: 20110107
  3. TOREM [Concomitant]
     Indication: PRODUCT USED FOR UNKNOWN INDICATION
     Route: 048
     Dates: end: 20101021
  4. DALMADORM [Concomitant]
     Indication: PRODUCT USED FOR UNKNOWN INDICATION
     Route: 048
  5. TOLVON [Suspect]
     Indication: DEPRESSION
     Route: 048
     Dates: start: 20100601, end: 20101024
  6. DAFALGAN [Concomitant]
     Dosage: 4 GRAM DAILY
     Dates: end: 20101020
  7. ARICEPT [Suspect]
     Route: 048
     Dates: start: 20101025, end: 20101108
  8. CLAMOXYL [Suspect]
     Indication: HELICOBACTER INFECTION
     Route: 048
     Dates: start: 20101030, end: 20101105
  9. EUTHYROX [Concomitant]
     Indication: PRODUCT USED FOR UNKNOWN INDICATION
     Route: 048
  10. NEXIUM [Concomitant]
     Indication: PRODUCT USED FOR UNKNOWN INDICATION
     Route: 048
     Dates: start: 20101025
  11. DAFALGAN [Concomitant]
     Indication: PRODUCT USED FOR UNKNOWN INDICATION
     Dosage: 3 GRAM DAILY
     Dates: start: 20101021
  12. KLACID [Suspect]
     Indication: HELICOBACTER INFECTION
     Route: 048
     Dates: start: 20101030, end: 20101105
  13. ARICEPT [Suspect]
     Indication: DEMENTIA ALZHEIMER'S TYPE
     Route: 048
     Dates: start: 20100601, end: 20101024
  14. PIROXICAM [Suspect]
     Indication: PRODUCT USED FOR UNKNOWN INDICATION
     Dates: start: 20100601

REACTIONS (6)
  - SKIN LESION [None]
  - ANAEMIA [None]
  - DUODENAL ULCER [None]
  - RASH MACULO-PAPULAR [None]
  - ERYTHEMA [None]
  - LEUKOENCEPHALOPATHY [None]
